FAERS Safety Report 10904675 (Version 1)
Quarter: 2015Q1

REPORT INFORMATION
  Report Type: Spontaneous
  Country: US (occurrence: None)
  Receive Date: 20150304
  Receipt Date: 20150304
  Transmission Date: 20150721
  Serious: No
  Sender: FDA-Public Use
  Company Number: None

PATIENT
  Age: 32 Year
  Sex: Male
  Weight: 68.04 kg

DRUGS (5)
  1. NORCO [Concomitant]
     Active Substance: ACETAMINOPHEN\HYDROCODONE BITARTRATE
  2. DIAZEPAM. [Concomitant]
     Active Substance: DIAZEPAM
  3. TRAMADOL HCL 50 MG MYLAN [Suspect]
     Active Substance: TRAMADOL HYDROCHLORIDE
     Dosage: 1 TABLET AS NEEDED TAKEN BY MOUTH
     Route: 048
     Dates: start: 20150220, end: 20150303
  4. CYCLOBENZAPR [Concomitant]
  5. ALEVE [Concomitant]
     Active Substance: NAPROXEN SODIUM

REACTIONS (6)
  - Headache [None]
  - Dizziness [None]
  - Abdominal discomfort [None]
  - Anxiety [None]
  - Mouth swelling [None]
  - Confusional state [None]

NARRATIVE: CASE EVENT DATE: 20150303
